FAERS Safety Report 8679999 (Version 3)
Quarter: 2012Q4

REPORT INFORMATION
  Report Type: Report from Study
  Country: GB (occurrence: GB)
  Receive Date: 20120724
  Receipt Date: 20121008
  Transmission Date: 20130627
  Serious: Yes (Death, Hospitalization)
  Sender: FDA-Public Use
  Company Number: GB-UCBSA-062247

PATIENT
  Age: 64 Year
  Sex: Female
  Weight: 68 kg

DRUGS (10)
  1. CERTOLIZUMAB [Suspect]
     Indication: RHEUMATOID ARTHRITIS
     Route: 058
     Dates: start: 20110510, end: 201205
  2. AMITRIPTYLINE [Concomitant]
  3. ORAMORPH [Concomitant]
  4. RANITIDINE [Concomitant]
  5. TIOTROPIUM [Concomitant]
  6. AZITHROMYCIN [Concomitant]
  7. PREDNISOLONE [Concomitant]
  8. SALMETEROL [Concomitant]
  9. TEICOPLANIN [Concomitant]
  10. GENTIMYCIN [Concomitant]

REACTIONS (3)
  - Multi-organ failure [Fatal]
  - Abdominal abscess [Fatal]
  - Diverticular perforation [Fatal]
